FAERS Safety Report 10986386 (Version 1)
Quarter: 2015Q2

REPORT INFORMATION
  Report Type: Spontaneous
  Country: US (occurrence: None)
  Receive Date: 20150403
  Receipt Date: 20150403
  Transmission Date: 20150821
  Serious: No
  Sender: FDA-Public Use
  Company Number: None

PATIENT
  Age: 59 Year
  Sex: Male

DRUGS (3)
  1. FINASTERIDE. [Concomitant]
     Active Substance: FINASTERIDE
  2. ELIQUIS [Concomitant]
     Active Substance: APIXABAN
  3. XARELTO [Suspect]
     Active Substance: RIVAROXABAN
     Indication: ATRIAL FIBRILLATION
     Dosage: ONE 20MG TABLET ONCE A DAY ONCE DAILY TAKEN BY MOUTH
     Route: 048
     Dates: start: 20141027, end: 20150309

REACTIONS (7)
  - Joint stiffness [None]
  - Pain [None]
  - Movement disorder [None]
  - Myalgia [None]
  - Middle insomnia [None]
  - Musculoskeletal stiffness [None]
  - Arthralgia [None]

NARRATIVE: CASE EVENT DATE: 20141201
